FAERS Safety Report 7893377-6 (Version None)
Quarter: 2011Q4

REPORT INFORMATION
  Report Type: 
  Country: None (occurrence: None)
  Receive Date: 20111104
  Receipt Date: 20111024
  Transmission Date: 20120403
  Serious: Yes (Other)
  Sender: FDA-Public Use
  Company Number: US-PERRIGO-11US009177

PATIENT
  Sex: Female
  Weight: 90.703 kg

DRUGS (2)
  1. WARFARIN SODIUM [Concomitant]
     Indication: FACTOR V LEIDEN MUTATION
     Dosage: 10 MG, QD
     Route: 048
     Dates: start: 20080101
  2. PHENYLEPHRINE HCL [Suspect]
     Indication: NASAL CONGESTION
     Dosage: TWO SPRAYS EACH NOSTRIL, 50 TIMES DAILY
     Route: 045
     Dates: start: 20110501, end: 20111020

REACTIONS (6)
  - SINUSITIS [None]
  - DEPENDENCE [None]
  - POOR QUALITY SLEEP [None]
  - INTENTIONAL DRUG MISUSE [None]
  - INCORRECT DRUG ADMINISTRATION DURATION [None]
  - CONDITION AGGRAVATED [None]
